FAERS Safety Report 17407732 (Version 1)
Quarter: 2020Q1

REPORT INFORMATION
  Report Type: Spontaneous
  Country: US (occurrence: US)
  Receive Date: 20200212
  Receipt Date: 20200212
  Transmission Date: 20200409
  Serious: Yes (Other)
  Sender: FDA-Public Use
  Company Number: US-SA-2020SA032171

PATIENT
  Age: 37 Year
  Sex: Male

DRUGS (4)
  1. ANTI-THYMOCYTE GLOBULIN (RABBIT) NOS [Suspect]
     Active Substance: LAPINE T-LYMPHOCYTE IMMUNE GLOBULIN
     Indication: IMMUNOSUPPRESSION
     Dosage: UNK
     Route: 042
  2. MYCOPHENOLATE MOFETIL. [Suspect]
     Active Substance: MYCOPHENOLATE MOFETIL
     Indication: IMMUNOSUPPRESSION
     Dosage: UNK
  3. PREDNISONE. [Suspect]
     Active Substance: PREDNISONE
     Indication: IMMUNOSUPPRESSION
     Dosage: UNK
  4. TACROLIMUS. [Suspect]
     Active Substance: TACROLIMUS
     Indication: IMMUNOSUPPRESSION
     Dosage: UNK

REACTIONS (14)
  - Night sweats [Recovering/Resolving]
  - Cytomegalovirus infection [Recovering/Resolving]
  - Cytomegalovirus nephritis [Recovered/Resolved]
  - Pneumonitis [Recovering/Resolving]
  - Pulmonary mass [Recovering/Resolving]
  - Fatigue [Recovering/Resolving]
  - BK virus infection [Recovering/Resolving]
  - Cytomegalovirus viraemia [Recovered/Resolved]
  - Pyrexia [Recovering/Resolving]
  - Acute kidney injury [Recovered/Resolved]
  - Chills [Recovering/Resolving]
  - Leukopenia [Recovering/Resolving]
  - Polyomavirus-associated nephropathy [Recovered/Resolved]
  - Dyspnoea exertional [Recovering/Resolving]
